FAERS Safety Report 6981960-1 (Version None)
Quarter: 2010Q3

REPORT INFORMATION
  Report Type: 
  Country: None (occurrence: None)
  Receive Date: 20100914
  Receipt Date: 20091118
  Transmission Date: 20110219
  Serious: No
  Sender: FDA-Public Use
  Company Number: US-PFIZER INC-2009275077

PATIENT
  Sex: Female
  Weight: 63.5 kg

DRUGS (3)
  1. LYRICA [Suspect]
     Indication: DIZZINESS
     Dosage: 75 MG, 1X/DAY
     Route: 048
     Dates: start: 20090917, end: 20090922
  2. LYRICA [Suspect]
     Indication: NEURALGIA
  3. LABETALOL HCL [Concomitant]
     Indication: HYPERTENSION
     Dosage: UNK

REACTIONS (1)
  - JOINT SWELLING [None]
